FAERS Safety Report 15272815 (Version 2)
Quarter: 2018Q3

REPORT INFORMATION
  Report Type: Spontaneous
  Country: MT (occurrence: GB)
  Receive Date: 20180813
  Receipt Date: 20180822
  Transmission Date: 20181010
  Serious: Yes (Death)
  Sender: FDA-Public Use
  Company Number: MT-PFIZER INC-2018320230

PATIENT
  Age: 43 Year
  Sex: Male

DRUGS (1)
  1. MYLOTARG [Suspect]
     Active Substance: GEMTUZUMAB OZOGAMICIN
     Indication: ACUTE MYELOID LEUKAEMIA
     Dosage: 5 MG, CYCLIC ON DAYS 1, 4 AND 7

REACTIONS (1)
  - Death [Fatal]

NARRATIVE: CASE EVENT DATE: 20180808
